FAERS Safety Report 9149934 (Version 1)
Quarter: 2013Q1

REPORT INFORMATION
  Report Type: Spontaneous
  Country: US (occurrence: US)
  Receive Date: 20130308
  Receipt Date: 20130308
  Transmission Date: 20140127
  Serious: No
  Sender: FDA-Public Use
  Company Number: US-ENDO PHARMACEUTICALS INC.-OPCR20121087

PATIENT
  Age: 30 Year
  Sex: Male
  Weight: 113.5 kg

DRUGS (4)
  1. OPANA ER [Suspect]
     Indication: SPONDYLOLYSIS
     Route: 048
     Dates: start: 20120507
  2. OPANA ER [Suspect]
     Indication: INTERVERTEBRAL DISC PROTRUSION
     Route: 048
     Dates: start: 20120507
  3. OPANA ER [Concomitant]
     Indication: SPONDYLOLYSIS
     Route: 048
     Dates: end: 20120507
  4. OPANA ER [Concomitant]
     Indication: INTERVERTEBRAL DISC PROTRUSION
     Route: 048
     Dates: end: 20120507

REACTIONS (6)
  - Flatulence [Not Recovered/Not Resolved]
  - Urine odour abnormal [Not Recovered/Not Resolved]
  - Chromaturia [Not Recovered/Not Resolved]
  - Diarrhoea [Not Recovered/Not Resolved]
  - Abdominal pain upper [Not Recovered/Not Resolved]
  - Drug effect incomplete [Not Recovered/Not Resolved]
